FAERS Safety Report 7018007-7 (Version None)
Quarter: 2010Q3

REPORT INFORMATION
  Report Type: 
  Country: None (occurrence: None)
  Receive Date: 20100923
  Receipt Date: 20100923
  Transmission Date: 20110219
  Serious: Yes (Other)
  Sender: FDA-Public Use
  Company Number: 1022556-2010-00059

PATIENT
  Sex: Female

DRUGS (1)
  1. ICY HOT POWER GEL 1.75 OZ [Suspect]
     Indication: MYALGIA
     Dosage: TOPICAL
     Route: 061

REACTIONS (3)
  - BLISTER [None]
  - SKIN DISORDER [None]
  - SKIN EXFOLIATION [None]
